FAERS Safety Report 25586774 (Version 2)
Quarter: 2025Q3

REPORT INFORMATION
  Report Type: Spontaneous
  Country: EU (occurrence: EU)
  Receive Date: 20250721
  Receipt Date: 20250812
  Transmission Date: 20251021
  Serious: Yes (Hospitalization, Other)
  Sender: NOVO NORDISK
  Company Number: EU-NOVOPROD-1477854

PATIENT
  Age: 33 Year
  Sex: Male

DRUGS (11)
  1. NORDITROPIN [Suspect]
     Active Substance: SOMATROPIN
     Indication: Prophylaxis
  2. TRAZODONE [Concomitant]
     Active Substance: TRAZODONE HYDROCHLORIDE
     Indication: Depression
  3. CITALOPRAM [Concomitant]
     Active Substance: CITALOPRAM
     Indication: Depression
  4. HYDROXYZINE [Concomitant]
     Active Substance: HYDROXYZINE HYDROCHLORIDE
     Indication: Depression
  5. ALPRAZOLAM [Concomitant]
     Active Substance: ALPRAZOLAM
     Indication: Depression
     Dosage: 0.5 MG, QD
  6. ALPRAZOLAM [Concomitant]
     Active Substance: ALPRAZOLAM
     Dosage: 1 MG, QD
  7. DIAZEPAM [Concomitant]
     Active Substance: DIAZEPAM
     Indication: Depression
  8. TESTOSTERONE [Concomitant]
     Active Substance: TESTOSTERONE
  9. NANDROLONE [Concomitant]
     Active Substance: NANDROLONE
  10. CABERGOLINE [Concomitant]
     Active Substance: CABERGOLINE
  11. ANASTROZOLE [Concomitant]
     Active Substance: ANASTROZOLE

REACTIONS (9)
  - Postprandial hypoglycaemia [Unknown]
  - Andropause [Unknown]
  - Blood growth hormone increased [Unknown]
  - Insulin-like growth factor increased [Unknown]
  - High density lipoprotein decreased [Unknown]
  - Hypertension [Unknown]
  - Chest pain [Unknown]
  - Treatment noncompliance [Recovered/Resolved]
  - Off label use [Unknown]
